FAERS Safety Report 7883152-0 (Version None)
Quarter: 2011Q4

REPORT INFORMATION
  Report Type: 
  Country: None (occurrence: None)
  Receive Date: 20111101
  Receipt Date: 20111101
  Transmission Date: 20120403
  Serious: Yes (Hospitalization)
  Sender: FDA-Public Use
  Company Number: None

PATIENT
  Sex: Female
  Weight: 62.7 kg

DRUGS (3)
  1. DOXORUBICIN HCL [Suspect]
     Dosage: 400 MG
  2. COREG [Concomitant]
  3. CYCLOPHOSPHAMIDE [Suspect]
     Dosage: 4400 MG

REACTIONS (4)
  - MYELODYSPLASTIC SYNDROME [None]
  - THROMBOCYTOPENIA [None]
  - MARROW HYPERPLASIA [None]
  - CHOLELITHIASIS [None]
